FAERS Safety Report 9044450 (Version 1)
Quarter: 2013Q1

REPORT INFORMATION
  Report Type: Report from Study
  Country: US (occurrence: US)
  Receive Date: 20130130
  Receipt Date: 20130130
  Transmission Date: 20140127
  Serious: No
  Sender: FDA-Public Use
  Company Number: US-ABBOTT-12P-163-0959479-00

PATIENT
  Age: 53 Year
  Sex: Male

DRUGS (29)
  1. HUMIRA 40 MG/ 0.8 ML PRE-FILLED SYRINGE [Suspect]
     Indication: PSORIATIC ARTHROPATHY
     Dates: start: 2009, end: 201203
  2. METHOTREXATE [Concomitant]
     Indication: PSORIATIC ARTHROPATHY
     Route: 048
  3. ALLOPURINOL [Concomitant]
     Indication: GOUT
     Dosage: 100MG DAILY
     Route: 048
  4. BENICAR [Concomitant]
     Indication: BLOOD PRESSURE
     Dosage: 40MG DAILY
     Route: 048
  5. VITAMINS [Concomitant]
     Indication: PRODUCT USED FOR UNKNOWN INDICATION
     Dosage: 1 DAILY
  6. TRICOR [Concomitant]
     Indication: BLOOD CHOLESTEROL
     Dosage: 145MG DAILY
     Route: 048
  7. OMEPRAZOLE [Concomitant]
     Indication: GASTROOESOPHAGEAL REFLUX DISEASE
     Dosage: 20MG DAILY
     Route: 048
  8. CRESTOR [Concomitant]
     Indication: BLOOD CHOLESTEROL
     Dosage: 20MG DAILY
     Route: 048
  9. CYMBALTA [Concomitant]
     Indication: ANXIETY
     Dosage: 60MG DAILY
     Route: 048
  10. CYMBALTA [Concomitant]
     Indication: NEUROPATHY PERIPHERAL
  11. PREDNISONE [Concomitant]
     Indication: INFLAMMATION
     Dosage: 7MG DAILY
     Route: 048
  12. ATENOLOL [Concomitant]
     Indication: BLOOD PRESSURE
     Route: 048
  13. AMLODIPINE [Concomitant]
     Indication: BLOOD PRESSURE
     Dosage: 10MG DAILY
     Route: 048
  14. FOLIC ACID [Concomitant]
     Indication: VITAMIN SUPPLEMENTATION
     Dosage: 4MG DAILY
     Route: 048
  15. ACTOSE [Concomitant]
     Indication: DIABETES MELLITUS
     Dosage: 30MG DAILY
     Route: 048
  16. LANTIS [Concomitant]
     Indication: DIABETES MELLITUS
     Dosage: AM AND PM
     Route: 058
  17. TESTOSTERONE [Concomitant]
     Indication: PRODUCT USED FOR UNKNOWN INDICATION
  18. ENDOCET [Concomitant]
     Indication: PAIN
     Dosage: 5/325 2 IN THE AFTERNOON AND 2 IN PM
     Route: 048
  19. NOVOLOG [Concomitant]
     Indication: DIABETES MELLITUS
     Dosage: FLEXPEN; VARYING DOSE WITH EVERY MEAL
     Route: 058
  20. HUMULIN R [Concomitant]
     Indication: DIABETES MELLITUS
     Dosage: VARYING DOSE WITH EVERY MEAL
     Route: 058
  21. LOVAZA [Concomitant]
     Indication: BLOOD CHOLESTEROL
     Dosage: 4 DAILY
     Route: 048
  22. CALCIUM [Concomitant]
     Indication: PRODUCT USED FOR UNKNOWN INDICATION
     Dosage: 600MG DAILY
     Route: 048
  23. VITAMIN D [Concomitant]
     Indication: PRODUCT USED FOR UNKNOWN INDICATION
  24. AMITRIPTYLINE [Concomitant]
     Indication: NEUROPATHY PERIPHERAL
     Dosage: AT SLEEP
     Route: 048
  25. JANUVIA [Concomitant]
     Indication: DIABETES MELLITUS
     Dosage: 50MG DAILY
     Route: 048
  26. LASIX [Concomitant]
     Indication: DIURETIC THERAPY
     Dosage: 20MG DAILY
     Route: 048
  27. SYNTHROID [Concomitant]
     Indication: THYROID DISORDER
     Dosage: 50MCG DAILY
     Route: 048
  28. HYDRALAZINE [Concomitant]
     Indication: BLOOD PRESSURE
     Route: 048
  29. HYDROXYZINE PAM [Concomitant]
     Indication: PAIN
     Dosage: 2 DAILY
     Route: 048

REACTIONS (1)
  - Psoriatic arthropathy [Recovered/Resolved]
